FAERS Safety Report 4909242-X (Version None)
Quarter: 2006Q1

REPORT INFORMATION
  Report Type: 
  Country: None (occurrence: None)
  Receive Date: 20060209
  Receipt Date: 20060209
  Transmission Date: 20060701
  Serious: Yes (Other)
  Sender: FDA-Public Use
  Company Number: None

PATIENT
  Sex: Female

DRUGS (1)
  1. NEURONTIN [Suspect]
     Indication: PAIN
     Dosage: 800 MG PO TID
     Route: 048

REACTIONS (2)
  - DERMATITIS ALLERGIC [None]
  - PHARMACEUTICAL PRODUCT COMPLAINT [None]
